FAERS Safety Report 12990660 (Version 2)
Quarter: 2016Q4

REPORT INFORMATION
  Report Type: Report from Study
  Country: CA (occurrence: CA)
  Receive Date: 20161201
  Receipt Date: 20161208
  Transmission Date: 20170207
  Serious: Yes (Hospitalization)
  Sender: FDA-Public Use
  Company Number: CA-JNJFOC-20160207970

PATIENT
  Sex: Female
  Weight: 67.2 kg

DRUGS (1)
  1. REMICADE [Suspect]
     Active Substance: INFLIXIMAB
     Indication: CROHN^S DISEASE
     Route: 042
     Dates: start: 20150615, end: 20160501

REACTIONS (4)
  - Hospitalisation [Unknown]
  - Intestinal resection [Unknown]
  - Drug ineffective [Unknown]
  - Colostomy [Unknown]

NARRATIVE: CASE EVENT DATE: 2016
